FAERS Safety Report 5338076-X (Version None)
Quarter: 2007Q2

REPORT INFORMATION
  Report Type: 
  Country: None (occurrence: None)
  Receive Date: 20070530
  Receipt Date: 20070521
  Transmission Date: 20071010
  Serious: Yes (Hospitalization)
  Sender: FDA-Public Use
  Company Number: PHBS2007NL07228

PATIENT
  Age: 47 Year
  Sex: Male

DRUGS (2)
  1. CLOZAPINE [Suspect]
     Indication: SCHIZOPHRENIA, PARANOID TYPE
     Dosage: 200-350 MG/D
     Route: 065
  2. CLOMIPRAMINE HCL [Concomitant]
     Dosage: 100 MG/D

REACTIONS (7)
  - ILEUS PARALYTIC [None]
  - INFLUENZA LIKE ILLNESS [None]
  - MEGACOLON [None]
  - PNEUMONIA BACTERIAL [None]
  - PYREXIA [None]
  - RED BLOOD CELL SEDIMENTATION RATE ABNORMAL [None]
  - WHITE BLOOD CELL COUNT ABNORMAL [None]
